FAERS Safety Report 8927648 (Version 2)
Quarter: 2012Q4

REPORT INFORMATION
  Report Type: Report from Study
  Country: CA (occurrence: CA)
  Receive Date: 20121127
  Receipt Date: 20121129
  Transmission Date: 20130627
  Serious: Yes (Hospitalization)
  Sender: FDA-Public Use
  Company Number: CA-JNJFOC-20121110588

PATIENT
  Age: 64 Year
  Sex: Male
  Weight: 90.72 kg

DRUGS (5)
  1. STELARA [Suspect]
     Indication: PSORIASIS
     Route: 058
     Dates: start: 201007
  2. CALCIUM [Concomitant]
  3. VITAMIN D [Concomitant]
  4. FELODIPINE [Concomitant]
  5. TERAZOSIN [Concomitant]

REACTIONS (1)
  - Acute coronary syndrome [Recovered/Resolved]
